FAERS Safety Report 7161721 (Version 3)
Quarter: 2018Q1

REPORT INFORMATION
  Report Type: Spontaneous
  Country: HK (occurrence: HK)
  Receive Date: 20091029
  Receipt Date: 20180205
  Transmission Date: 20180509
  Serious: Yes (Hospitalization)
  Sender: FDA-Public Use
  Company Number: HK-ROCHE-664381

PATIENT
  Age: 4 Year
  Sex: Male

DRUGS (1)
  1. TAMIFLU [Suspect]
     Active Substance: OSELTAMIVIR PHOSPHATE
     Indication: H1N1 INFLUENZA
     Route: 048
     Dates: start: 20090917, end: 20090921

REACTIONS (7)
  - Confusional state [Recovered/Resolved]
  - Delirium [Recovered/Resolved]
  - Vision blurred [Unknown]
  - Speech disorder [Recovered/Resolved]
  - Mental disorder [Recovered/Resolved]
  - Abnormal behaviour [Recovered/Resolved]
  - Amnesia [Recovered/Resolved]

NARRATIVE: CASE EVENT DATE: 20090926
